FAERS Safety Report 5490872-4 (Version None)
Quarter: 2007Q4

REPORT INFORMATION
  Report Type: 
  Country: None (occurrence: None)
  Receive Date: 20071019
  Receipt Date: 20071011
  Transmission Date: 20080405
  Serious: Yes (Hospitalization)
  Sender: FDA-Public Use
  Company Number: US-ROCHE-524722

PATIENT
  Age: 47 Year
  Sex: Female

DRUGS (4)
  1. PEGASYS [Suspect]
     Dosage: MISSED ONE DOSE ON 05 OCTOBER 2007
     Route: 065
     Dates: start: 20070223
  2. RIBAVIRIN [Suspect]
     Route: 065
     Dates: start: 20070223
  3. WELLBUTRIN [Suspect]
     Indication: DRUG USE FOR UNKNOWN INDICATION
     Route: 065
     Dates: end: 20070914
  4. WELLBUTRIN [Suspect]
     Route: 065
     Dates: start: 20070914

REACTIONS (3)
  - CONCUSSION [None]
  - CONVULSION [None]
  - FALL [None]
